FAERS Safety Report 6432298-2 (Version None)
Quarter: 2009Q4

REPORT INFORMATION
  Report Type: 
  Country: None (occurrence: None)
  Receive Date: 20091109
  Receipt Date: 20091028
  Transmission Date: 20100525
  Serious: Yes (Death)
  Sender: FDA-Public Use
  Company Number: JP-PFIZER INC-2009203110

PATIENT
  Age: 68 Year
  Sex: Female
  Weight: 43.1 kg

DRUGS (8)
  1. SUNITINIB MALATE [Suspect]
     Indication: RENAL CELL CARCINOMA
     Dosage: 25 MG, 1X/DAY
     Route: 048
     Dates: start: 20080730, end: 20090220
  2. ROHYPNOL [Concomitant]
     Dosage: UNK
     Dates: start: 20080717
  3. LENDORMIN [Concomitant]
     Dosage: UNK
     Dates: start: 20080717
  4. GASMOTIN [Concomitant]
  5. LANSOPRAZOLE [Concomitant]
  6. MOHRUS [Concomitant]
     Dosage: UNK
     Dates: start: 20080725
  7. TOCLASE [Concomitant]
     Dosage: UNK
     Dates: start: 20080803, end: 20080822
  8. APHTASOLON [Concomitant]
     Dosage: UNK
     Dates: start: 20080814

REACTIONS (1)
  - COMPLETED SUICIDE [None]
